FAERS Safety Report 9902203 (Version 2)
Quarter: 2014Q1

REPORT INFORMATION
  Report Type: Spontaneous
  Country: US (occurrence: US)
  Receive Date: 20140217
  Receipt Date: 20140217
  Transmission Date: 20141002
  Serious: No
  Sender: FDA-Public Use
  Company Number: US-GILEAD-2011-0042994

PATIENT
  Age: 79 Year
  Sex: Female

DRUGS (18)
  1. LETAIRIS [Suspect]
     Indication: PULMONARY HYPERTENSION
     Route: 048
     Dates: start: 20110727
  2. REVATIO [Concomitant]
  3. COZAAR [Concomitant]
  4. METOPROLOL SUCCINATE [Concomitant]
  5. COUMADIN [Concomitant]
     Indication: ATRIAL FIBRILLATION
  6. ALDACTONE [Concomitant]
  7. FUROSEMIDE [Concomitant]
  8. POTASSIUM CHLORIDE [Concomitant]
  9. SYNTHROID [Concomitant]
  10. PROVENTIL [Concomitant]
  11. METFORMIN [Concomitant]
  12. MUCINEX [Concomitant]
  13. NEXIUM [Concomitant]
  14. ALLOPURINOL [Concomitant]
  15. ULTRAM [Concomitant]
  16. CLARITIN [Concomitant]
  17. ERGOCALCIFEROL/NICOTINAMIDE/RETINOL/ASCORBIC ACID/FOLIC ACID/PANTHENOL/RIBOFLAVIN/THIAMINE HYDROCHLO [Concomitant]
  18. VITAMIN D [Concomitant]

REACTIONS (2)
  - Fatigue [Unknown]
  - Oedema peripheral [Unknown]
